FAERS Safety Report 6683271-0 (Version None)
Quarter: 2010Q2

REPORT INFORMATION
  Report Type: 
  Country: None (occurrence: None)
  Receive Date: 20100415
  Receipt Date: 20100406
  Transmission Date: 20101027
  Serious: Yes (Other)
  Sender: FDA-Public Use
  Company Number: ZA-JNJFOC-20100400261

PATIENT
  Sex: Female
  Weight: 65 kg

DRUGS (1)
  1. REVELLEX [Suspect]
     Indication: RHEUMATOID ARTHRITIS
     Dosage: DURATION INDICATED AS ^TO NOW^
     Route: 042

REACTIONS (2)
  - HIP ARTHROPLASTY [None]
  - PULMONARY EMBOLISM [None]
